FAERS Safety Report 9214506 (Version 2)
Quarter: 2013Q2

REPORT INFORMATION
  Report Type: Spontaneous
  Country: DE (occurrence: DE)
  Receive Date: 20130405
  Receipt Date: 20130422
  Transmission Date: 20140414
  Serious: No
  Sender: FDA-Public Use
  Company Number: DE-ROCHE-1210047

PATIENT
  Sex: Male
  Weight: 76 kg

DRUGS (6)
  1. AVASTIN [Suspect]
     Indication: GLIOBLASTOMA
     Route: 042
     Dates: start: 20130211, end: 20130325
  2. DIAMOX [Concomitant]
  3. HYDROXYCHLOROQUINE [Concomitant]
     Indication: GLIOBLASTOMA
     Dosage: 400 MG
     Route: 048
     Dates: start: 20130211, end: 20130325
  4. DEXAMETHASONE [Concomitant]
     Indication: BRAIN OEDEMA
     Dosage: 12 MG
     Route: 048
  5. VALPROIC ACID [Concomitant]
     Indication: GLIOBLASTOMA
     Dosage: 1500 MG
     Route: 048
     Dates: start: 20130211, end: 20130325
  6. ACETAZOLAMIDE [Concomitant]
     Indication: GLIOBLASTOMA
     Dosage: 1000 MG
     Route: 048
     Dates: start: 20130215, end: 20130325

REACTIONS (1)
  - General physical health deterioration [Recovered/Resolved]
